FAERS Safety Report 7604262-9 (Version None)
Quarter: 2011Q3

REPORT INFORMATION
  Report Type: 
  Country: None (occurrence: None)
  Receive Date: 20110712
  Receipt Date: 20110701
  Transmission Date: 20111222
  Serious: Yes (Hospitalization)
  Sender: FDA-Public Use
  Company Number: FR-BAXTER-2011BH016673

PATIENT
  Age: 74 Year
  Sex: Male

DRUGS (6)
  1. GAMMAGARD LIQUID [Suspect]
     Indication: CHRONIC INFLAMMATORY DEMYELINATING POLYRADICULONEUROPATHY
     Route: 042
     Dates: start: 20110421, end: 20110422
  2. GAMMAGARD LIQUID [Suspect]
     Route: 042
     Dates: start: 20110418, end: 20110420
  3. OCTAGAM [Concomitant]
     Indication: PRODUCT USED FOR UNKNOWN INDICATION
     Dates: start: 20100401
  4. GAMMAGARD LIQUID [Suspect]
     Indication: OFF LABEL USE
     Route: 042
     Dates: start: 20110421, end: 20110422
  5. GAMMAGARD LIQUID [Suspect]
     Route: 042
     Dates: start: 20110418, end: 20110420
  6. CORTICOSTEROIDS [Concomitant]
     Indication: PRODUCT USED FOR UNKNOWN INDICATION
     Route: 065
     Dates: start: 20100401

REACTIONS (3)
  - HEADACHE [None]
  - LEUKOPENIA [None]
  - NEUTROPENIA [None]
